FAERS Safety Report 19093271 (Version 1)
Quarter: 2021Q2

REPORT INFORMATION
  Report Type: Spontaneous
  Country: JP (occurrence: JP)
  Receive Date: 20210405
  Receipt Date: 20210405
  Transmission Date: 20210717
  Serious: Yes (Other)
  Sender: FDA-Public Use
  Company Number: JP-PFIZER INC-2021339096

PATIENT
  Age: 36 Year
  Sex: Female

DRUGS (2)
  1. AZULFIDINE EN?TABS [Suspect]
     Active Substance: SULFASALAZINE
     Dosage: 250 MG
     Route: 048
     Dates: start: 201907, end: 201907
  2. AZULFIDINE EN?TABS [Suspect]
     Active Substance: SULFASALAZINE
     Dosage: 500 MG
     Route: 048
     Dates: start: 201907, end: 201908

REACTIONS (1)
  - Drug reaction with eosinophilia and systemic symptoms [Unknown]
